FAERS Safety Report 17558806 (Version 4)
Quarter: 2020Q3

REPORT INFORMATION
  Report Type: Spontaneous
  Country: JP (occurrence: JP)
  Receive Date: 20200318
  Receipt Date: 20200914
  Transmission Date: 20201102
  Serious: Yes (Other)
  Sender: FDA-Public Use
  Company Number: JP-BRISTOL-MYERS SQUIBB COMPANY-BMS-2020-020083

PATIENT
  Age: 67 Year
  Sex: Female

DRUGS (4)
  1. ORENCIA [Suspect]
     Active Substance: ABATACEPT
     Indication: PRODUCT USED FOR UNKNOWN INDICATION
     Dosage: UNK, ONE TIME DOSE
     Route: 058
     Dates: start: 20200227, end: 20200227
  2. ORENCIA [Suspect]
     Active Substance: ABATACEPT
     Dosage: UNK, ONE TIME DOSE
     Route: 058
     Dates: start: 20200305, end: 20200305
  3. CORTICOSTEROIDS, DERMATOLOGICAL PREPARATIONS [Concomitant]
     Active Substance: UNSPECIFIED INGREDIENT
     Indication: PRODUCT USED FOR UNKNOWN INDICATION
     Route: 065
  4. INSULIN [Concomitant]
     Active Substance: INSULIN NOS
     Indication: DIABETES MELLITUS
     Route: 065

REACTIONS (5)
  - Hyperhidrosis [Unknown]
  - Interstitial lung disease [Unknown]
  - Pruritus [Unknown]
  - Tremor [Unknown]
  - Productive cough [Unknown]
